FAERS Safety Report 9769362 (Version 1)
Quarter: 2013Q4

REPORT INFORMATION
  Report Type: Spontaneous
  Country: FR (occurrence: FR)
  Receive Date: 20131218
  Receipt Date: 20131218
  Transmission Date: 20140711
  Serious: Yes (Other)
  Sender: FDA-Public Use
  Company Number: FR-ASTELLAS-2013US013072

PATIENT
  Age: 55 Year
  Sex: Female

DRUGS (2)
  1. AMBISOME [Suspect]
     Indication: FUSARIUM INFECTION
     Dosage: UNK
     Route: 065
  2. VORICONAZOLE [Suspect]
     Indication: FUSARIUM INFECTION
     Dosage: UNK
     Route: 065

REACTIONS (2)
  - Drug ineffective [Unknown]
  - Immune reconstitution inflammatory syndrome [Unknown]
